FAERS Safety Report 25926755 (Version 1)
Quarter: 2025Q4

REPORT INFORMATION
  Report Type: Spontaneous
  Country: US (occurrence: None)
  Receive Date: 20251015
  Receipt Date: 20251015
  Transmission Date: 20260117
  Serious: Yes (unspecified)
  Sender: FDA-CTU
  Company Number: None

PATIENT
  Age: 75 Year
  Sex: Male
  Weight: 108 kg

DRUGS (5)
  1. JARDIANCE [Suspect]
     Active Substance: EMPAGLIFLOZIN
     Indication: Diabetes mellitus
     Dosage: OTHER QUANTITY : 30 TABLET(S);?FREQUENCY : DAILY;?
     Route: 048
     Dates: start: 20250925, end: 20251009
  2. LEVOTHYROXINE SODIUM [Concomitant]
     Active Substance: LEVOTHYROXINE SODIUM
  3. NIFEDIPINE [Concomitant]
     Active Substance: NIFEDIPINE
  4. ATORVASTATIN [Concomitant]
     Active Substance: ATORVASTATIN
  5. LOW-DOSE ASPIRIN [Concomitant]
     Active Substance: ASPIRIN

REACTIONS (6)
  - Penile erythema [None]
  - Pruritus genital [None]
  - Penile pain [None]
  - Penile discomfort [None]
  - Penile burning sensation [None]
  - Therapy cessation [None]

NARRATIVE: CASE EVENT DATE: 20251009
